FAERS Safety Report 11603401 (Version 1)
Quarter: 2015Q4

REPORT INFORMATION
  Report Type: Spontaneous
  Country: US (occurrence: None)
  Receive Date: 20151005
  Receipt Date: 20151005
  Transmission Date: 20160304
  Serious: Yes (Hospitalization)
  Sender: FDA-Public Use
  Company Number: None

PATIENT
  Age: 47 Year
  Sex: Female
  Weight: 77.27 kg

DRUGS (1)
  1. TEMOZOLOMIDE. [Suspect]
     Active Substance: TEMOZOLOMIDE
     Dates: end: 20150908

REACTIONS (7)
  - Confusional state [None]
  - Oral candidiasis [None]
  - Mental status changes [None]
  - Lethargy [None]
  - Stomatitis [None]
  - Encephalopathy [None]
  - Hyperglycaemia [None]

NARRATIVE: CASE EVENT DATE: 20150909
